FAERS Safety Report 9531241 (Version 1)
Quarter: 2013Q2

REPORT INFORMATION
  Report Type: Spontaneous
  Country: US (occurrence: None)
  Receive Date: 20130419
  Receipt Date: 20130419
  Transmission Date: 20140414
  Serious: Yes (Life-Threatening)
  Sender: FDA-Public Use
  Company Number: FK201202979

PATIENT
  Age: 61 Year
  Sex: Female

DRUGS (1)
  1. HEPARIN SODIUM [Suspect]
     Indication: ANTICOAGULANT THERAPY
     Dosage: 20000 USP UNITS
     Route: 042
     Dates: start: 20120919

REACTIONS (1)
  - Heparin-induced thrombocytopenia [None]
